FAERS Safety Report 17843356 (Version 1)
Quarter: 2020Q2

REPORT INFORMATION
  Report Type: Spontaneous
  Country: US (occurrence: US)
  Receive Date: 20200530
  Receipt Date: 20200530
  Transmission Date: 20200714
  Serious: Yes (Hospitalization, Other)
  Sender: FDA-Public Use
  Company Number: US-ACCORD-183303

PATIENT
  Age: 13 Year

DRUGS (4)
  1. TOPIRAMATE. [Concomitant]
     Active Substance: TOPIRAMATE
     Indication: MIGRAINE
  2. ESCITALOPRAM [Concomitant]
     Active Substance: ESCITALOPRAM OXALATE
     Indication: DEPRESSION
  3. BECLOMETASONE [Concomitant]
     Active Substance: BECLOMETHASONE DIPROPIONATE
     Indication: ASTHMA
     Dosage: 80 MCG INHALED
  4. LISINOPRIL. [Suspect]
     Active Substance: LISINOPRIL
     Dosage: 27 PILLS OF LISINOPRIL

REACTIONS (2)
  - Suicide attempt [Unknown]
  - Overdose [Unknown]
